FAERS Safety Report 16186024 (Version 4)
Quarter: 2024Q2

REPORT INFORMATION
  Report Type: Spontaneous
  Country: ES (occurrence: ES)
  Receive Date: 20190411
  Receipt Date: 20240417
  Transmission Date: 20240716
  Serious: Yes (Hospitalization)
  Sender: FDA-Public Use
  Company Number: ES-EMA-DD-20190322-KORTI_S1-094516

PATIENT
  Age: 46 Year
  Sex: Female

DRUGS (20)
  1. CANDESARTAN [Suspect]
     Active Substance: CANDESARTAN
     Indication: Migraine
     Dosage: UNK; CANDESARTAN CILEXETIL
     Route: 065
  2. TOPIRAMATE [Suspect]
     Active Substance: TOPIRAMATE
     Indication: Migraine
     Dosage: DOSAGE FORM: UNSPECIFIED
     Route: 048
  3. TOPIRAMATE [Suspect]
     Active Substance: TOPIRAMATE
     Indication: Migraine
     Dosage: UNK
     Route: 065
  4. ZONISAMIDE [Suspect]
     Active Substance: ZONISAMIDE
     Indication: Migraine
     Dosage: UNK
     Route: 048
  5. ESCITALOPRAM [Suspect]
     Active Substance: ESCITALOPRAM OXALATE
     Indication: Migraine
     Dosage: UNK
     Route: 048
  6. FLUNARIZINE [Suspect]
     Active Substance: FLUNARIZINE
     Indication: Migraine
     Dosage: UNK
     Route: 048
  7. ETORICOXIB [Suspect]
     Active Substance: ETORICOXIB
     Indication: Migraine
     Dosage: UNK
     Route: 065
  8. LAMOTRIGINE [Suspect]
     Active Substance: LAMOTRIGINE
     Indication: Migraine
     Dosage: UNK
     Route: 048
  9. LEVOMEPROMAZINE [Suspect]
     Active Substance: LEVOMEPROMAZINE
     Indication: Migraine
     Dosage: UNK
     Route: 048
  10. LEVOMEPROMAZINE [Suspect]
     Active Substance: LEVOMEPROMAZINE
     Indication: Migraine
     Route: 065
  11. BOTOX [Suspect]
     Active Substance: ONABOTULINUMTOXINA
     Indication: Migraine
     Dosage: UNK
     Route: 065
  12. BOTOX [Suspect]
     Active Substance: ONABOTULINUMTOXINA
     Indication: Migraine
     Dosage: DOSAGE TEXT: 300 U, (PER SESSION)
     Route: 065
  13. ELETRIPTAN [Suspect]
     Active Substance: ELETRIPTAN
     Indication: Migraine
     Dosage: UNK
     Route: 065
  14. LEVOTHROID [Concomitant]
     Active Substance: LEVOTHYROXINE SODIUM
     Indication: Hypothyroidism
     Dosage: UNK
     Route: 065
  15. DILTIAZEM [Suspect]
     Active Substance: DILTIAZEM
     Indication: Migraine
     Dosage: UNK
     Route: 048
  16. NADOLOL [Suspect]
     Active Substance: NADOLOL
     Indication: Migraine
     Dosage: UNK
     Route: 048
  17. AMITRIPTYLINE [Suspect]
     Active Substance: AMITRIPTYLINE
     Indication: Migraine
     Dosage: UNK
     Route: 048
  18. VALPROATE [Suspect]
     Active Substance: VALPROIC ACID
     Indication: Migraine
     Dosage: UNK
     Route: 048
  19. PREGABALIN [Suspect]
     Active Substance: PREGABALIN
     Indication: Migraine
     Dosage: UNK
     Route: 065
  20. PREGABALIN [Suspect]
     Active Substance: PREGABALIN
     Indication: Migraine
     Dosage: DOSAGE FORM: UNSPECIFIED
     Route: 065

REACTIONS (6)
  - Weight decreased [Unknown]
  - Drug eruption [Unknown]
  - Drug ineffective [Unknown]
  - Therapeutic product effect incomplete [Unknown]
  - Somnolence [Unknown]
  - Withdrawal syndrome [Unknown]
